FAERS Safety Report 8463126-1 (Version None)
Quarter: 2012Q2

REPORT INFORMATION
  Report Type: 
  Country: None (occurrence: None)
  Receive Date: 20120323
  Receipt Date: 20111129
  Transmission Date: 20120825
  Serious: Yes (Disabling, Other)
  Sender: FDA-Public Use
  Company Number: 163-21880-11092867

PATIENT
  Age: 53 Year
  Sex: Female

DRUGS (5)
  1. VELCADE [Concomitant]
  2. ZOMETA [Concomitant]
  3. DEXAMETHASONE [Concomitant]
  4. REVLIMID [Suspect]
     Indication: MULTIPLE MYELOMA
     Dosage: 25 MG, DAILY X 14 DAYS, PO; 25 MG, DAILY C 21 DAYS, 7 OFF, PO
     Route: 048
     Dates: start: 20100301
  5. REVLIMID [Suspect]
     Indication: MULTIPLE MYELOMA
     Dosage: 25 MG, DAILY X 14 DAYS, PO; 25 MG, DAILY C 21 DAYS, 7 OFF, PO
     Route: 048
     Dates: start: 20090701

REACTIONS (2)
  - FATIGUE [None]
  - NEUROPATHY PERIPHERAL [None]
